FAERS Safety Report 7069279-4 (Version None)
Quarter: 2010Q4

REPORT INFORMATION
  Report Type: 
  Country: None (occurrence: None)
  Receive Date: 20101028
  Receipt Date: 20100915
  Transmission Date: 20110411
  Serious: Yes (Death, Hospitalization, Other)
  Sender: FDA-Public Use
  Company Number: US-BAXTER-2010BH001616

PATIENT
  Age: 77 Year
  Sex: Male

DRUGS (74)
  1. HEPARIN SODIUM INJECTION [Suspect]
     Indication: HAEMODIALYSIS
     Route: 040
     Dates: start: 20060819, end: 20071201
  2. HEPARIN SODIUM INJECTION [Suspect]
     Indication: THROMBOSIS PROPHYLAXIS
     Route: 040
     Dates: start: 20060819, end: 20071201
  3. HEPARIN SODIUM INJECTION [Suspect]
     Indication: ANTICOAGULANT THERAPY
     Route: 040
     Dates: start: 20060819, end: 20071201
  4. HEPARIN SODIUM INJECTION [Suspect]
     Indication: INTRAVENOUS CATHETER MANAGEMENT
     Route: 040
     Dates: start: 20060819, end: 20071201
  5. HEPARIN SODIUM INJECTION [Suspect]
     Route: 042
     Dates: start: 20060819, end: 20071201
  6. HEPARIN SODIUM INJECTION [Suspect]
     Route: 042
     Dates: start: 20060819, end: 20071201
  7. HEPARIN SODIUM INJECTION [Suspect]
     Route: 042
     Dates: start: 20060819, end: 20071201
  8. HEPARIN SODIUM INJECTION [Suspect]
     Route: 042
     Dates: start: 20060819, end: 20071201
  9. HEPARIN SODIUM INJECTION [Suspect]
     Route: 058
     Dates: start: 20071212, end: 20071224
  10. HEPARIN SODIUM INJECTION [Suspect]
     Route: 058
     Dates: start: 20071212, end: 20071224
  11. HEPARIN SODIUM INJECTION [Suspect]
     Route: 058
     Dates: start: 20071212, end: 20071224
  12. HEPARIN SODIUM INJECTION [Suspect]
     Route: 058
     Dates: start: 20071212, end: 20071224
  13. HEPARIN SODIUM INJECTION [Suspect]
     Route: 040
     Dates: start: 20080109, end: 20080109
  14. HEPARIN SODIUM INJECTION [Suspect]
     Route: 040
     Dates: start: 20080109, end: 20080109
  15. HEPARIN SODIUM INJECTION [Suspect]
     Route: 040
     Dates: start: 20080109, end: 20080109
  16. HEPARIN SODIUM INJECTION [Suspect]
     Route: 040
     Dates: start: 20080109, end: 20080109
  17. HEPARIN SODIUM INJECTION [Suspect]
     Route: 042
     Dates: start: 20071220, end: 20071224
  18. HEPARIN SODIUM INJECTION [Suspect]
     Route: 042
     Dates: start: 20071220, end: 20071224
  19. HEPARIN SODIUM INJECTION [Suspect]
     Route: 042
     Dates: start: 20071220, end: 20071224
  20. HEPARIN SODIUM INJECTION [Suspect]
     Route: 042
     Dates: start: 20071220, end: 20071224
  21. HEPARIN SODIUM INJECTION [Suspect]
     Route: 042
     Dates: start: 20080115, end: 20080115
  22. HEPARIN SODIUM INJECTION [Suspect]
     Route: 042
     Dates: start: 20080115, end: 20080115
  23. HEPARIN SODIUM INJECTION [Suspect]
     Route: 042
     Dates: start: 20080115, end: 20080115
  24. HEPARIN SODIUM INJECTION [Suspect]
     Route: 042
     Dates: start: 20080115, end: 20080115
  25. HEPARIN SODIUM INJECTION [Suspect]
     Route: 042
     Dates: start: 20071220, end: 20071224
  26. HEPARIN SODIUM INJECTION [Suspect]
     Route: 042
     Dates: start: 20071220, end: 20071224
  27. HEPARIN SODIUM INJECTION [Suspect]
     Route: 042
     Dates: start: 20071220, end: 20071224
  28. HEPARIN SODIUM INJECTION [Suspect]
     Route: 042
     Dates: start: 20071220, end: 20071224
  29. HEPARIN SODIUM INJECTION [Suspect]
     Route: 040
     Dates: start: 20080115, end: 20080212
  30. HEPARIN SODIUM INJECTION [Suspect]
     Route: 040
     Dates: start: 20080115, end: 20080212
  31. HEPARIN SODIUM INJECTION [Suspect]
     Route: 040
     Dates: start: 20080115, end: 20080212
  32. HEPARIN SODIUM INJECTION [Suspect]
     Route: 040
     Dates: start: 20080115, end: 20080212
  33. HEPARIN SODIUM INJECTION [Suspect]
     Route: 042
     Dates: start: 20080115, end: 20080212
  34. HEPARIN SODIUM INJECTION [Suspect]
     Route: 042
     Dates: start: 20080115, end: 20080212
  35. HEPARIN SODIUM INJECTION [Suspect]
     Route: 042
     Dates: start: 20080115, end: 20080212
  36. HEPARIN SODIUM INJECTION [Suspect]
     Route: 042
     Dates: start: 20080115, end: 20080212
  37. HEPARIN SODIUM INJECTION [Suspect]
     Route: 040
     Dates: start: 20080212, end: 20080212
  38. HEPARIN SODIUM INJECTION [Suspect]
     Route: 040
     Dates: start: 20080212, end: 20080212
  39. HEPARIN SODIUM INJECTION [Suspect]
     Route: 040
     Dates: start: 20080212, end: 20080212
  40. HEPARIN SODIUM INJECTION [Suspect]
     Route: 040
     Dates: start: 20080212, end: 20080212
  41. HEPARIN SODIUM INJECTION [Suspect]
     Route: 042
     Dates: start: 20080212, end: 20080212
  42. HEPARIN SODIUM INJECTION [Suspect]
     Route: 042
     Dates: start: 20080212, end: 20080212
  43. HEPARIN SODIUM INJECTION [Suspect]
     Route: 042
     Dates: start: 20080212, end: 20080212
  44. HEPARIN SODIUM INJECTION [Suspect]
     Route: 042
     Dates: start: 20080212, end: 20080212
  45. HEPARIN SODIUM 1,000 UNITS IN SODIUM CHLORIDE 0.9% [Suspect]
     Indication: ANGIOPLASTY
     Route: 042
     Dates: start: 20071211, end: 20071211
  46. HEPARIN SODIUM 5,000 UNITS IN DEXTROSE 5% [Suspect]
     Indication: ANTICOAGULANT THERAPY
     Route: 042
     Dates: start: 20080109, end: 20080110
  47. WARFARIN SODIUM [Suspect]
     Indication: ATRIAL FIBRILLATION
     Route: 048
     Dates: start: 20071201
  48. WARFARIN SODIUM [Suspect]
     Route: 048
     Dates: start: 20071201
  49. NEURONTIN [Suspect]
     Indication: PRODUCT USED FOR UNKNOWN INDICATION
     Route: 065
     Dates: end: 20080131
  50. NEURONTIN [Suspect]
     Route: 065
     Dates: start: 20080131, end: 20080212
  51. CORDARONE [Concomitant]
     Indication: PRODUCT USED FOR UNKNOWN INDICATION
     Route: 065
  52. LIPITOR [Concomitant]
     Indication: PRODUCT USED FOR UNKNOWN INDICATION
     Route: 065
  53. IMIDIN [Concomitant]
     Indication: PRODUCT USED FOR UNKNOWN INDICATION
     Route: 065
  54. PRILOSEC [Concomitant]
     Indication: PRODUCT USED FOR UNKNOWN INDICATION
     Route: 065
  55. ARMOUR THYROID [Concomitant]
     Indication: PRODUCT USED FOR UNKNOWN INDICATION
     Route: 065
  56. VITAMIN E [Concomitant]
     Indication: PRODUCT USED FOR UNKNOWN INDICATION
     Route: 065
  57. ASPIRIN [Concomitant]
     Indication: PRODUCT USED FOR UNKNOWN INDICATION
     Route: 065
  58. PHOSLO [Concomitant]
     Indication: PRODUCT USED FOR UNKNOWN INDICATION
     Route: 065
  59. DARVOCET-N 100 [Concomitant]
     Indication: PRODUCT USED FOR UNKNOWN INDICATION
     Route: 065
  60. NEPHROCAPS [Concomitant]
     Indication: PRODUCT USED FOR UNKNOWN INDICATION
     Route: 065
  61. PROAMATINE [Concomitant]
     Indication: PRODUCT USED FOR UNKNOWN INDICATION
     Route: 065
  62. COLACE [Concomitant]
     Indication: PRODUCT USED FOR UNKNOWN INDICATION
     Route: 065
  63. DIGOXIN [Concomitant]
     Indication: PRODUCT USED FOR UNKNOWN INDICATION
     Route: 065
  64. NITROGLYCERIN [Concomitant]
     Indication: PRODUCT USED FOR UNKNOWN INDICATION
     Route: 065
  65. ATIVAN [Concomitant]
     Indication: PRODUCT USED FOR UNKNOWN INDICATION
     Route: 065
  66. ULTRAM [Concomitant]
     Indication: PRODUCT USED FOR UNKNOWN INDICATION
     Route: 065
  67. ARICEPT [Concomitant]
     Indication: PRODUCT USED FOR UNKNOWN INDICATION
     Route: 065
  68. INSULIN [Concomitant]
     Indication: PRODUCT USED FOR UNKNOWN INDICATION
     Route: 065
  69. GRANULEX [Concomitant]
     Indication: PRODUCT USED FOR UNKNOWN INDICATION
     Route: 065
  70. COLCHICINE [Concomitant]
     Indication: PRODUCT USED FOR UNKNOWN INDICATION
     Route: 065
  71. HYDRALAZINE [Concomitant]
     Indication: PRODUCT USED FOR UNKNOWN INDICATION
     Route: 065
  72. IMDUR [Concomitant]
     Indication: PRODUCT USED FOR UNKNOWN INDICATION
     Route: 065
  73. RESTORIL [Concomitant]
     Indication: PRODUCT USED FOR UNKNOWN INDICATION
     Route: 065
  74. EPOGEN [Concomitant]
     Indication: PRODUCT USED FOR UNKNOWN INDICATION
     Route: 065

REACTIONS (27)
  - ARTERIOSCLEROSIS CORONARY ARTERY [None]
  - ARTERIOVENOUS FISTULA THROMBOSIS [None]
  - CARDIAC FLUTTER [None]
  - COAGULOPATHY [None]
  - CONFUSIONAL STATE [None]
  - DECREASED APPETITE [None]
  - DECUBITUS ULCER [None]
  - DIZZINESS [None]
  - DYSPNOEA [None]
  - ENTEROCOCCUS TEST POSITIVE [None]
  - ESCHERICHIA TEST POSITIVE [None]
  - FALL [None]
  - FLUID OVERLOAD [None]
  - HAEMATOCRIT DECREASED [None]
  - HAEMOGLOBIN DECREASED [None]
  - HIP FRACTURE [None]
  - HYPOTENSION [None]
  - LETHARGY [None]
  - MENTAL STATUS CHANGES [None]
  - METABOLIC ENCEPHALOPATHY [None]
  - NAUSEA [None]
  - PROTHROMBIN TIME PROLONGED [None]
  - RASH [None]
  - SEPSIS [None]
  - TOXIC ENCEPHALOPATHY [None]
  - TYPE 2 DIABETES MELLITUS [None]
  - WEIGHT DECREASED [None]
